FAERS Safety Report 25522422 (Version 1)
Quarter: 2025Q3

REPORT INFORMATION
  Report Type: Spontaneous
  Country: EU (occurrence: EU)
  Receive Date: 20250707
  Receipt Date: 20250707
  Transmission Date: 20251020
  Serious: No
  Sender: ALKEM
  Company Number: EU-ALKEM LABORATORIES LIMITED-FR-ALKEM-2024-24675

PATIENT
  Age: 53 Year
  Sex: Female

DRUGS (12)
  1. DRONABINOL [Suspect]
     Active Substance: DRONABINOL
     Indication: Neuralgia
     Dosage: 2.5 MILLIGRAM, BID (IN TWO INTAKES) (CAPSULE MOLLE)
     Route: 048
     Dates: start: 20240910
  2. DRONABINOL [Suspect]
     Active Substance: DRONABINOL
     Dosage: 5 MILLIGRAM, BID (CAPSULE MOLLE (DRONABINOL) (SOFT CAPSULE))
     Route: 048
  3. DRONABINOL [Suspect]
     Active Substance: DRONABINOL
     Dosage: 7.5 MILLIGRAM, BID (CAPSULE MOLLE)
     Route: 065
  4. AMITRIPTYLINE [Concomitant]
     Active Substance: AMITRIPTYLINE
     Indication: Product used for unknown indication
     Dosage: 50 MILLIGRAM, QD (IN THE EVENING)
     Route: 065
  5. ATORVASTATIN [Concomitant]
     Active Substance: ATORVASTATIN
     Indication: Product used for unknown indication
     Route: 065
  6. CLONAZEPAM [Concomitant]
     Active Substance: CLONAZEPAM
     Indication: Product used for unknown indication
     Dosage: 4.5 MILLIGRAM, QD (IN THE EVENING)
     Route: 065
     Dates: start: 201911
  7. EFFEXOR [Concomitant]
     Active Substance: VENLAFAXINE HYDROCHLORIDE
     Indication: Product used for unknown indication
     Dosage: 75 MILLIGRAM, BID
     Route: 065
  8. LORMETAZEPAM [Concomitant]
     Active Substance: LORMETAZEPAM
     Indication: Product used for unknown indication
     Route: 065
  9. TEGRETOL [Concomitant]
     Active Substance: CARBAMAZEPINE
     Indication: Pain
     Route: 065
     Dates: start: 201911
  10. TEGRETOL [Concomitant]
     Active Substance: CARBAMAZEPINE
     Route: 065
  11. TRAMADOL [Concomitant]
     Active Substance: TRAMADOL
     Indication: Pain
     Route: 065
  12. TRAMADOL [Concomitant]
     Active Substance: TRAMADOL
     Dosage: 150 MILLIGRAM, BID (300 MILLIGRAM)
     Route: 065

REACTIONS (5)
  - Fatigue [Recovered/Resolved]
  - Nausea [Recovered/Resolved]
  - Somnolence [Unknown]
  - Drug ineffective [Unknown]
  - Product prescribing issue [Unknown]

NARRATIVE: CASE EVENT DATE: 20240901
